FAERS Safety Report 5765648-0 (Version None)
Quarter: 2008Q2

REPORT INFORMATION
  Report Type: 
  Country: None (occurrence: None)
  Receive Date: 20080606
  Receipt Date: 20080528
  Transmission Date: 20081010
  Serious: Yes (Other)
  Sender: FDA-Public Use
  Company Number: CHPA2008US08989

PATIENT
  Age: 63 Year
  Sex: Female

DRUGS (2)
  1. EXCEDRIN UNKNOWN (NCH) UNKNOWN [Suspect]
     Dosage: ORAL
     Route: 048
  2. INSULIN (INSULIN) [Concomitant]

REACTIONS (2)
  - FEELING JITTERY [None]
  - HYPERTENSION [None]
